FAERS Safety Report 8012923-5 (Version None)
Quarter: 2011Q4

REPORT INFORMATION
  Report Type: 
  Country: None (occurrence: None)
  Receive Date: 20111229
  Receipt Date: 20111221
  Transmission Date: 20120403
  Serious: Yes (Other)
  Sender: FDA-Public Use
  Company Number: JP-ASTELLAS-2011JP009308

PATIENT
  Age: 67 Year
  Sex: Female

DRUGS (7)
  1. RITUXIMAB [Concomitant]
     Dosage: UNK
     Route: 065
     Dates: end: 20060501
  2. PROTOPIC [Suspect]
     Indication: PARANEOPLASTIC PEMPHIGUS
     Route: 061
  3. PREDNISOLONE [Concomitant]
     Dosage: 20 MG, UNKNOWN/D
     Route: 048
     Dates: start: 20050301, end: 20050501
  4. PREDNISOLONE [Concomitant]
     Dosage: 15 MG, UNKNOWN/D
     Route: 048
     Dates: start: 20050501
  5. PREDNISOLONE [Concomitant]
     Indication: PARANEOPLASTIC PEMPHIGUS
     Dosage: 60 MG, UNKNOWN/D
     Route: 048
     Dates: end: 20050301
  6. RITUXIMAB [Concomitant]
     Dosage: 375 MG/M2, WEEKLY
     Route: 065
  7. CYCLOSPORINE [Concomitant]
     Indication: PARANEOPLASTIC PEMPHIGUS
     Dosage: 5 MG/KG, UNKNOWN/D
     Route: 065

REACTIONS (2)
  - FUNGAL SKIN INFECTION [None]
  - OFF LABEL USE [None]
